FAERS Safety Report 7271590-9 (Version None)
Quarter: 2011Q1

REPORT INFORMATION
  Report Type: 
  Country: None (occurrence: None)
  Receive Date: 20110121
  Receipt Date: 20110121
  Transmission Date: 20110831
  Serious: Yes (Hospitalization)
  Sender: FDA-Public Use
  Company Number: None

PATIENT
  Age: 33 Year
  Sex: Female
  Weight: 47.6277 kg

DRUGS (1)
  1. DEPACON [Suspect]
     Indication: COMPLICATED MIGRAINE
     Dosage: 500MG ONCE IV
     Route: 042
     Dates: start: 20110111, end: 20110111

REACTIONS (23)
  - GAIT DISTURBANCE [None]
  - DIARRHOEA [None]
  - OVERDOSE [None]
  - UNRESPONSIVE TO STIMULI [None]
  - BACK PAIN [None]
  - TINNITUS [None]
  - DYSPHAGIA [None]
  - RHINORRHOEA [None]
  - PYREXIA [None]
  - COMPLICATED MIGRAINE [None]
  - LETHARGY [None]
  - DYSPNOEA [None]
  - HYPOAESTHESIA [None]
  - TREMOR [None]
  - DRUG INEFFECTIVE [None]
  - ASTHENIA [None]
  - ARTHROPATHY [None]
  - WEIGHT FLUCTUATION [None]
  - VISION BLURRED [None]
  - INCORRECT DRUG ADMINISTRATION RATE [None]
  - APPETITE DISORDER [None]
  - ARTHRALGIA [None]
  - CONVULSION [None]
